FAERS Safety Report 13386771 (Version 2)
Quarter: 2022Q2

REPORT INFORMATION
  Report Type: Spontaneous
  Country: US (occurrence: US)
  Receive Date: 20170330
  Receipt Date: 20220509
  Transmission Date: 20220721
  Serious: No
  Sender: FDA-Public Use
  Company Number: US-PFIZER INC-2017137811

PATIENT
  Age: 68 Year
  Sex: Female
  Weight: 102.06 kg

DRUGS (3)
  1. XELJANZ [Suspect]
     Active Substance: TOFACITINIB CITRATE
     Indication: Rheumatoid arthritis
     Dosage: 5 MG, 2X/DAY, (TAKING TWO 5MG IN THE MORNING AND ONE AT NIGHT )
     Route: 048
  2. PREDNISONE [Concomitant]
     Active Substance: PREDNISONE
     Dosage: 20 MG, 1X/DAY, (APPROXIMATELY 20MG PER DAY IN THE MORNING )
  3. HYDROCODONE [Concomitant]
     Active Substance: HYDROCODONE
     Dosage: OCCASIONALLY TAKES

REACTIONS (3)
  - Intentional product misuse [Unknown]
  - Off label use [Unknown]
  - Weight increased [Unknown]
